FAERS Safety Report 26191116 (Version 1)
Quarter: 2025Q4

REPORT INFORMATION
  Report Type: Report from Study
  Country: CA (occurrence: CA)
  Receive Date: 20251223
  Receipt Date: 20251223
  Transmission Date: 20260117
  Serious: Yes (Hospitalization, Other)
  Sender: AUROBINDO
  Company Number: CA-AUROBINDO-AUR-APL-2025-066533

PATIENT
  Age: 62 Year
  Sex: Male

DRUGS (6)
  1. VANCOMYCIN HYDROCHLORIDE [Suspect]
     Active Substance: VANCOMYCIN HYDROCHLORIDE
     Indication: Enterococcal infection
     Dosage: UNK
     Route: 065
  2. CYTARABINE [Suspect]
     Active Substance: CYTARABINE
     Indication: Acute myeloid leukaemia
     Dosage: 100 MG/M2 FOR 7 DAYS
  3. CYTARABINE [Suspect]
     Active Substance: CYTARABINE
     Indication: Acute myeloid leukaemia
     Dosage: 50 MG/M2  FOR 7 DAYS
     Route: 065
  4. DASATINIB [Suspect]
     Active Substance: DASATINIB
     Indication: Acute myeloid leukaemia
     Dosage: 70 MILLIGRAM, TWO TIMES A DAY
     Route: 061
  5. AZACITIDINE [Suspect]
     Active Substance: AZACITIDINE
     Indication: Product used for unknown indication
     Dosage: 300 MILLIGRAM, DAILY  DAYS 1?14, EVERY 28 DAYS)
     Route: 061
  6. DAUNORUBICIN HYDROCHLORIDE [Concomitant]
     Active Substance: DAUNORUBICIN HYDROCHLORIDE
     Indication: Acute myeloid leukaemia
     Dosage: 60 MG/M2  FOR 3 DAYS
     Route: 065

REACTIONS (10)
  - Febrile neutropenia [Recovering/Resolving]
  - Renal impairment [Recovering/Resolving]
  - Nephropathy toxic [Recovering/Resolving]
  - Hypertransaminasaemia [Recovering/Resolving]
  - Mobility decreased [Recovering/Resolving]
  - Physical deconditioning [Recovering/Resolving]
  - Rash morbilliform [Recovering/Resolving]
  - Ulcer [Recovering/Resolving]
  - Face oedema [Recovering/Resolving]
  - Mucosal inflammation [Unknown]
